FAERS Safety Report 4786131-5 (Version None)
Quarter: 2005Q3

REPORT INFORMATION
  Report Type: 
  Country: None (occurrence: None)
  Receive Date: 20050930
  Receipt Date: 20050126
  Transmission Date: 20060218
  Serious: Yes (Hospitalization)
  Sender: FDA-Public Use
  Company Number: 2005FR-00284

PATIENT
  Age: 84 Year
  Sex: Female

DRUGS (8)
  1. ASPIRIN [Suspect]
     Dosage: 75 MG ORAL
     Route: 048
     Dates: end: 20041226
  2. CALCICHEW D3 [Concomitant]
  3. FOSAMAX [Concomitant]
  4. PRAVASTATIN [Concomitant]
  5. BECOTIDE [Concomitant]
  6. FUROSEMIDE [Concomitant]
  7. CO-DYDRAMOL [Concomitant]
  8. ALGICON [Concomitant]

REACTIONS (2)
  - ANAEMIA [None]
  - GASTRIC ULCER [None]
